FAERS Safety Report 7475368-2 (Version None)
Quarter: 2011Q2

REPORT INFORMATION
  Report Type: 
  Country: None (occurrence: None)
  Receive Date: 20110512
  Receipt Date: 20110504
  Transmission Date: 20111010
  Serious: Yes (Hospitalization)
  Sender: FDA-Public Use
  Company Number: FI-SANOFI-AVENTIS-2011SA026088

PATIENT
  Age: 60 Year
  Sex: Male
  Weight: 83 kg

DRUGS (6)
  1. PREDNISONE [Suspect]
     Indication: PROSTATE CANCER
     Route: 048
  2. PRIMASPAN [Concomitant]
  3. JEVTANA KIT [Suspect]
     Indication: PROSTATE CANCER
     Route: 042
     Dates: start: 20110301, end: 20110301
  4. ATORVASTATIN [Concomitant]
     Route: 048
  5. JEVTANA KIT [Suspect]
     Route: 042
     Dates: start: 20110414, end: 20110414
  6. IBUPROFEN [Concomitant]

REACTIONS (2)
  - ANAEMIA [None]
  - DUODENAL ULCER [None]
